FAERS Safety Report 18617175 (Version 2)
Quarter: 2020Q4

REPORT INFORMATION
  Report Type: Report from Study
  Country: US (occurrence: US)
  Receive Date: 20201215
  Receipt Date: 20201216
  Transmission Date: 20210114
  Serious: Yes (Death, Hospitalization)
  Sender: FDA-Public Use
  Company Number: US-JNJFOC-20201217998

PATIENT
  Age: 83 Year
  Sex: Male

DRUGS (1)
  1. SPRAVATO [Suspect]
     Active Substance: ESKETAMINE
     Indication: DEPRESSION
     Dosage: 56 MG,1 DOSE
     Dates: start: 20190726, end: 20190726

REACTIONS (2)
  - Foot fracture [Unknown]
  - Death [Fatal]

NARRATIVE: CASE EVENT DATE: 20201012
